FAERS Safety Report 6449391-0 (Version None)
Quarter: 2009Q4

REPORT INFORMATION
  Report Type: 
  Country: None (occurrence: None)
  Receive Date: 20091120
  Receipt Date: 20091112
  Transmission Date: 20100525
  Serious: Yes (Other)
  Sender: FDA-Public Use
  Company Number: US-JNJFOC-20091104529

PATIENT
  Sex: Female

DRUGS (1)
  1. LEVAQUIN [Suspect]
     Indication: INCISION SITE INFECTION
     Dosage: FIRST COURSE STARTED ON 02-DEC-2008 (DURATION OF 12 DAYS) AND SECOND COURSE (DURATION OF 50 DAYS)
     Route: 048
     Dates: start: 20081202, end: 20090202

REACTIONS (4)
  - BACK PAIN [None]
  - MUSCULOSKELETAL STIFFNESS [None]
  - OVARIAN CYST [None]
  - TENDON RUPTURE [None]
